FAERS Safety Report 17115536 (Version 2)
Quarter: 2019Q4

REPORT INFORMATION
  Report Type: Spontaneous
  Country: IT (occurrence: IT)
  Receive Date: 20191205
  Receipt Date: 20191209
  Transmission Date: 20200122
  Serious: Yes (Other)
  Sender: FDA-Public Use
  Company Number: IT-PFIZER INC-2019521339

PATIENT
  Age: 61 Year
  Sex: Female

DRUGS (8)
  1. OMEPRAZEN [OMEPRAZOLE] [Concomitant]
     Active Substance: OMEPRAZOLE
     Dosage: UNK
  2. METFORMIN [Concomitant]
     Active Substance: METFORMIN HYDROCHLORIDE
     Dosage: 500 MG, UNK
  3. GEMCITABINE HYDROCHLORIDE. [Suspect]
     Active Substance: GEMCITABINE HYDROCHLORIDE
     Indication: LUNG NEOPLASM MALIGNANT
     Dosage: 1650 MG, CYCLIC
     Route: 042
     Dates: start: 20190515, end: 20190718
  4. CARDIOASPIRIN [Concomitant]
     Active Substance: ASPIRIN
  5. CISPLATIN. [Suspect]
     Active Substance: CISPLATIN
     Indication: LUNG NEOPLASM MALIGNANT
     Dosage: 1258 MG, CYCLIC
     Route: 042
     Dates: start: 20190515, end: 20190718
  6. DOBETIN [CYANOCOBALAMIN;THIAMINE HYDROCHLORIDE] [Concomitant]
     Dosage: UNK
  7. TOTALIP [Concomitant]
     Active Substance: ATORVASTATIN
  8. TRIATEC [RAMIPRIL] [Concomitant]
     Active Substance: RAMIPRIL
     Dosage: UNK

REACTIONS (2)
  - Renal failure [Recovering/Resolving]
  - Dehydration [Recovering/Resolving]

NARRATIVE: CASE EVENT DATE: 20190718
